FAERS Safety Report 8017123-0 (Version None)
Quarter: 2012Q1

REPORT INFORMATION
  Report Type: 
  Country: None (occurrence: None)
  Receive Date: 20120102
  Receipt Date: 20111221
  Transmission Date: 20120608
  Serious: Yes (Hospitalization, Other)
  Sender: FDA-Public Use
  Company Number: GB-ROCHE-1026142

PATIENT
  Age: 66 Year
  Sex: Male
  Weight: 84.5 kg

DRUGS (2)
  1. ACTIVASE [Suspect]
     Indication: CEREBRAL INFARCTION
     Route: 042
     Dates: start: 20111201, end: 20111201
  2. MELOXICAM [Concomitant]

REACTIONS (4)
  - RASH [None]
  - HYPERTENSION [None]
  - TACHYCARDIA [None]
  - NEUROLOGICAL SYMPTOM [None]
